FAERS Safety Report 13881136 (Version 1)
Quarter: 2017Q3

REPORT INFORMATION
  Report Type: Spontaneous
  Country: US (occurrence: US)
  Receive Date: 20170818
  Receipt Date: 20170818
  Transmission Date: 20171127
  Serious: Yes (Hospitalization)
  Sender: FDA-Public Use
  Company Number: US-ASTRAZENECA-2017SE82884

PATIENT
  Age: 807 Month
  Sex: Female
  Weight: 44.5 kg

DRUGS (17)
  1. ASPIRIN. [Concomitant]
     Active Substance: ASPIRIN
     Indication: CARDIAC DISORDER
     Route: 048
     Dates: start: 2017
  2. LOPRESSOR [Concomitant]
     Active Substance: METOPROLOL TARTRATE
     Route: 048
     Dates: start: 2017
  3. PROTONIX [Concomitant]
     Active Substance: PANTOPRAZOLE SODIUM
     Indication: APPETITE DISORDER
     Route: 048
  4. ALBUTEROL-PROAIR [Concomitant]
     Indication: INHALATION THERAPY
     Dosage: AS REQUIRED
     Route: 055
  5. BENADRYL CREAM [Concomitant]
     Active Substance: DIPHENHYDRAMINE\ZINC ACETATE
     Indication: IMPLANT SITE PRURITUS
     Dosage: AS REQUIRED
     Route: 061
     Dates: start: 201612
  6. HYDROCRIN CREAM [Concomitant]
     Indication: THERMAL BURN
     Route: 061
     Dates: start: 201612
  7. ZOLOFT [Concomitant]
     Active Substance: SERTRALINE HYDROCHLORIDE
     Indication: DEPRESSION
     Route: 048
     Dates: start: 2016
  8. GABAPENTIN. [Concomitant]
     Active Substance: GABAPENTIN
     Indication: SCIATICA
     Dosage: THREE TIMES A DAY
     Route: 048
  9. SYMBICORT [Suspect]
     Active Substance: BUDESONIDE\FORMOTEROL FUMARATE DIHYDRATE
     Indication: EMPHYSEMA
     Dosage: 160/4.5 MCG, TWO PUFFS TWO TIMES A DAY
     Route: 055
  10. VITAMIN D3 [Concomitant]
     Active Substance: CHOLECALCIFEROL
     Route: 048
     Dates: start: 201707
  11. CARTIA XT [Concomitant]
     Active Substance: DILTIAZEM HYDROCHLORIDE
     Route: 048
     Dates: start: 2017
  12. MULTIVITAMIN [Concomitant]
     Active Substance: VITAMINS
     Route: 048
  13. SYMBICORT [Suspect]
     Active Substance: BUDESONIDE\FORMOTEROL FUMARATE DIHYDRATE
     Indication: ASTHMA
     Dosage: 160/4.5 MCG, TWO PUFFS TWO TIMES A DAY
     Route: 055
  14. SYMBICORT [Suspect]
     Active Substance: BUDESONIDE\FORMOTEROL FUMARATE DIHYDRATE
     Indication: CHRONIC OBSTRUCTIVE PULMONARY DISEASE
     Dosage: 160/4.5 MCG, TWO PUFFS TWO TIMES A DAY
     Route: 055
  15. LIPITOR [Concomitant]
     Active Substance: ATORVASTATIN CALCIUM
     Dates: start: 2016
  16. XARELTO [Concomitant]
     Active Substance: RIVAROXABAN
     Indication: APPETITE DISORDER
     Route: 048
  17. OXYGEN. [Concomitant]
     Active Substance: OXYGEN
     Indication: CHRONIC OBSTRUCTIVE PULMONARY DISEASE
     Dosage: UNKNOWN
     Route: 055

REACTIONS (18)
  - Cardiac disorder [Unknown]
  - Blood potassium decreased [Unknown]
  - Gait disturbance [Unknown]
  - Off label use [Unknown]
  - Pneumonia [Unknown]
  - Heart rate decreased [Unknown]
  - Visual impairment [Unknown]
  - Cerebrovascular accident [Unknown]
  - Thermal burn [Unknown]
  - Hypotension [Unknown]
  - Anxiety [Unknown]
  - Stress [Unknown]
  - Myocardial infarction [Unknown]
  - Fatigue [Unknown]
  - Therapy cessation [Unknown]
  - Product use in unapproved indication [Unknown]
  - Eating disorder [Unknown]
  - Intervertebral disc degeneration [Unknown]

NARRATIVE: CASE EVENT DATE: 201611
